FAERS Safety Report 8901561 (Version 3)
Quarter: 2014Q2

REPORT INFORMATION
  Report Type: Spontaneous
  Country: US (occurrence: US)
  Receive Date: 20121108
  Receipt Date: 20140528
  Transmission Date: 20141212
  Serious: No
  Sender: FDA-Public Use
  Company Number: US-ASTRAZENECA-2012SE83960

PATIENT
  Age: 82 Year
  Sex: Female
  Weight: 77.1 kg

DRUGS (9)
  1. NEXIUM [Suspect]
     Indication: GASTROOESOPHAGEAL REFLUX DISEASE
     Route: 048
     Dates: start: 2000
  2. NEXIUM [Suspect]
     Indication: GASTRIC ULCER
     Route: 048
     Dates: start: 2000
  3. NEXIUM [Suspect]
     Indication: GASTROOESOPHAGEAL REFLUX DISEASE
     Route: 048
     Dates: start: 2000
  4. METOPROLOL [Suspect]
     Route: 048
  5. ALBUTEROL [Concomitant]
     Indication: CHRONIC OBSTRUCTIVE PULMONARY DISEASE
  6. ELIQUIS [Concomitant]
     Indication: PROPHYLAXIS
  7. LOSARTAN [Concomitant]
     Indication: BLOOD POTASSIUM
  8. AMLODIPINE [Concomitant]
     Indication: BLOOD PRESSURE
  9. FUROSEMIDE [Concomitant]
     Indication: OEDEMA

REACTIONS (9)
  - Fall [Unknown]
  - Joint injury [Unknown]
  - Eye infection [Unknown]
  - Eye pruritus [Unknown]
  - Chronic obstructive pulmonary disease [Unknown]
  - Adverse event [Unknown]
  - Dry eye [Not Recovered/Not Resolved]
  - Atrial flutter [Unknown]
  - Visual impairment [Unknown]
